FAERS Safety Report 12428068 (Version 2)
Quarter: 2016Q2

REPORT INFORMATION
  Report Type: Spontaneous
  Country: US (occurrence: US)
  Receive Date: 20160602
  Receipt Date: 20160624
  Transmission Date: 20160815
  Serious: Yes (Other)
  Sender: FDA-Public Use
  Company Number: US-ENDO PHARMACEUTICALS INC.-2016-002793

PATIENT
  Sex: Male

DRUGS (2)
  1. TESTOSTERONE GEL [Suspect]
     Active Substance: TESTOSTERONE
     Route: 061
     Dates: start: 2015, end: 2016
  2. TESTOSTERONE GEL [Suspect]
     Active Substance: TESTOSTERONE
     Indication: PRODUCT USED FOR UNKNOWN INDICATION
     Route: 061
     Dates: start: 2016, end: 2016

REACTIONS (2)
  - Hypothalamo-pituitary disorder [Unknown]
  - Intentional product use issue [Unknown]

NARRATIVE: CASE EVENT DATE: 2016
